FAERS Safety Report 9877791 (Version 1)
Quarter: 2014Q1

REPORT INFORMATION
  Report Type: Spontaneous
  Country: US (occurrence: None)
  Receive Date: 20140204
  Receipt Date: 20140204
  Transmission Date: 20141002
  Serious: Yes (Other)
  Sender: FDA-Public Use
  Company Number: PI-10107

PATIENT
  Sex: Female

DRUGS (1)
  1. CHLORAPREP (2% CHG/70% IPA) WITH FD + C YELLOW# 6 [Suspect]
     Indication: PREOPERATIVE CARE
     Route: 061

REACTIONS (2)
  - Application site erythema [None]
  - Wound [None]
